FAERS Safety Report 8477808-9 (Version None)
Quarter: 2012Q2

REPORT INFORMATION
  Report Type: 
  Country: None (occurrence: None)
  Receive Date: 20120621
  Receipt Date: 20120612
  Transmission Date: 20120825
  Serious: No
  Sender: FDA-Public Use
  Company Number: 2011SP005258

PATIENT
  Age: 67 Year
  Sex: Female

DRUGS (9)
  1. TOFRANIL [Concomitant]
  2. VESICARE [Concomitant]
  3. SAPHRIS [Suspect]
     Indication: BIPOLAR DISORDER
     Dosage: 10 MG;UNK;SL 5 MG;UNK;SL 10 MG;BID;SL
     Route: 060
     Dates: start: 20110131
  4. SAPHRIS [Suspect]
     Indication: DEPRESSION
     Dosage: 10 MG;UNK;SL 5 MG;UNK;SL 10 MG;BID;SL
     Route: 060
     Dates: start: 20110131
  5. SAPHRIS [Suspect]
     Indication: BIPOLAR DISORDER
     Dosage: 10 MG;UNK;SL 5 MG;UNK;SL 10 MG;BID;SL
     Route: 060
     Dates: start: 20120501, end: 20120605
  6. SAPHRIS [Suspect]
     Indication: DEPRESSION
     Dosage: 10 MG;UNK;SL 5 MG;UNK;SL 10 MG;BID;SL
     Route: 060
     Dates: start: 20120501, end: 20120605
  7. LUVOX [Concomitant]
  8. ALLOPURINOL [Concomitant]
  9. GEMFIBROZIL [Concomitant]

REACTIONS (7)
  - FATIGUE [None]
  - WRONG TECHNIQUE IN DRUG USAGE PROCESS [None]
  - ASTHENIA [None]
  - OFF LABEL USE [None]
  - DYSPNOEA [None]
  - MEDICATION ERROR [None]
  - CONFUSIONAL STATE [None]
